FAERS Safety Report 11533314 (Version 1)
Quarter: 2015Q3

REPORT INFORMATION
  Report Type: Spontaneous
  Country: US (occurrence: US)
  Receive Date: 20150921
  Receipt Date: 20150921
  Transmission Date: 20151125
  Serious: No
  Sender: FDA-Public Use
  Company Number: US-ALLERGAN-1423299US

PATIENT
  Age: 29 Year
  Sex: Female
  Weight: 63.95 kg

DRUGS (1)
  1. LASTACAFT [Suspect]
     Active Substance: ALCAFTADINE
     Indication: HYPERSENSITIVITY
     Dosage: 2 GTT, QD
     Route: 047
     Dates: start: 20140327, end: 20141104

REACTIONS (6)
  - Eye irritation [Recovered/Resolved with Sequelae]
  - Eye pain [Recovered/Resolved]
  - Ocular hyperaemia [Recovered/Resolved]
  - Eye pruritus [Recovered/Resolved]
  - Exposure during pregnancy [Unknown]
  - Noninfective conjunctivitis [Recovered/Resolved]

NARRATIVE: CASE EVENT DATE: 20141102
